FAERS Safety Report 23091361 (Version 2)
Quarter: 2023Q4

REPORT INFORMATION
  Report Type: Report from Study
  Country: CA (occurrence: CA)
  Receive Date: 20231020
  Receipt Date: 20231206
  Transmission Date: 20240109
  Serious: Yes (Other)
  Sender: FDA-Public Use
  Company Number: CA-PFIZER INC-202300331088

PATIENT
  Age: 17 Year
  Sex: Female
  Weight: 47 kg

DRUGS (15)
  1. METHOTREXATE SODIUM [Suspect]
     Active Substance: METHOTREXATE SODIUM
     Dosage: UNK
  2. METHOTREXATE SODIUM [Suspect]
     Active Substance: METHOTREXATE SODIUM
     Dosage: 10 MG
     Route: 048
  3. ORENCIA [Suspect]
     Active Substance: ABATACEPT
     Indication: Juvenile idiopathic arthritis
     Dosage: 420 MG, MONTHLY
     Route: 042
  4. ORENCIA [Suspect]
     Active Substance: ABATACEPT
     Indication: Juvenile idiopathic arthritis
     Dosage: 500 MG, MONTHLY
     Route: 042
  5. BETAMETHASONE VALERATE/FUSIDIC ACID [Concomitant]
     Route: 061
  6. CONCERTA [Concomitant]
     Active Substance: METHYLPHENIDATE HYDROCHLORIDE
  7. DESONIDE [Concomitant]
     Active Substance: DESONIDE
     Route: 061
  8. MUPIROCIN [Concomitant]
     Active Substance: MUPIROCIN
     Route: 061
  9. PREDNISONE [Concomitant]
     Active Substance: PREDNISONE
  10. TACROLIMUS [Concomitant]
     Active Substance: TACROLIMUS
  11. ALMOTRIPTAN MALATE [Concomitant]
     Active Substance: ALMOTRIPTAN MALATE
     Dosage: 12.5 MG
  12. AMITRIPTYLINE [Concomitant]
     Active Substance: AMITRIPTYLINE
     Dosage: 10 MG
     Route: 048
  13. BETAMETHASONE [Concomitant]
     Active Substance: BETAMETHASONE\BETAMETHASONE DIPROPIONATE
  14. METHYLPHENIDATE [Concomitant]
     Active Substance: METHYLPHENIDATE
     Dosage: 18 MG
     Route: 048
  15. NAPROXEN [Concomitant]
     Active Substance: NAPROXEN
     Dosage: 375 MG
     Route: 048

REACTIONS (7)
  - Off label use [Not Recovered/Not Resolved]
  - Blood pressure diastolic increased [Not Recovered/Not Resolved]
  - Body temperature increased [Not Recovered/Not Resolved]
  - Eye inflammation [Not Recovered/Not Resolved]
  - Heart rate increased [Not Recovered/Not Resolved]
  - Skin reaction [Not Recovered/Not Resolved]
  - Fatigue [Not Recovered/Not Resolved]
